FAERS Safety Report 8587738-X (Version None)
Quarter: 2012Q3

REPORT INFORMATION
  Report Type: 
  Country: None (occurrence: None)
  Receive Date: 20120813
  Receipt Date: 20120808
  Transmission Date: 20120928
  Serious: Yes (Other)
  Sender: FDA-Public Use
  Company Number: US-AMGEN-USASP2012043440

PATIENT
  Age: 69 Year
  Sex: Female
  Weight: 53.061 kg

DRUGS (7)
  1. PROLIA [Suspect]
     Indication: OSTEOPOROSIS POSTMENOPAUSAL
     Dosage: 60 MG, Q6MO
     Route: 058
     Dates: start: 20101007, end: 20111107
  2. PROLIA [Suspect]
  3. PROLIA [Suspect]
  4. SIMVASTATIN [Concomitant]
  5. CALCIUM [Concomitant]
  6. TOPROL-XL [Concomitant]
  7. DIOVAN [Concomitant]

REACTIONS (4)
  - TOOTH FRACTURE [None]
  - BLOOD CALCIUM DECREASED [None]
  - OSTEONECROSIS OF JAW [None]
  - LOOSE TOOTH [None]
